FAERS Safety Report 21329865 (Version 1)
Quarter: 2022Q3

REPORT INFORMATION
  Report Type: Spontaneous
  Country: US (occurrence: US)
  Receive Date: 20220913
  Receipt Date: 20220913
  Transmission Date: 20221027
  Serious: Yes (Death)
  Sender: FDA-Public Use
  Company Number: US-Fresenius Medical Care Renal Therapies Group-FMC-2209-001344

PATIENT
  Age: 79 Year
  Sex: Male
  Weight: 86.2 kg

DRUGS (1)
  1. DELFLEX [Suspect]
     Active Substance: CALCIUM CHLORIDE\DEXTROSE\MAGNESIUM CHLORIDE\SODIUM CHLORIDE\SODIUM LACTATE
     Indication: End stage renal disease
     Dosage: 2700 ML FOR 4 CYCLER WITH NO LAST FILL AND NO DAYTIME EXCHANCE
     Route: 033

REACTIONS (1)
  - Cardiac arrest [Fatal]
